FAERS Safety Report 9587363 (Version 2)
Quarter: 2013Q4

REPORT INFORMATION
  Report Type: Spontaneous
  Country: US (occurrence: US)
  Receive Date: 20131003
  Receipt Date: 20131011
  Transmission Date: 20140711
  Serious: Yes (Other)
  Sender: FDA-Public Use
  Company Number: US-AMGEN-USASP2013069396

PATIENT
  Age: 59 Year
  Sex: Female
  Weight: 62.13 kg

DRUGS (2)
  1. ENBREL [Suspect]
     Indication: RHEUMATOID ARTHRITIS
     Dosage: 50 MG ONCE WEEKLY
     Route: 065
     Dates: start: 2007
  2. METHOTREXATE [Concomitant]
     Indication: RHEUMATOID ARTHRITIS
     Dosage: 2.5 UNK, 3 TABLETS PER WEEK
     Route: 048
     Dates: start: 2010

REACTIONS (1)
  - Pleurisy [Recovering/Resolving]
